FAERS Safety Report 15693844 (Version 1)
Quarter: 2018Q4

REPORT INFORMATION
  Report Type: Report from Study
  Country: US (occurrence: US)
  Receive Date: 20181206
  Receipt Date: 20181206
  Transmission Date: 20190205
  Serious: Yes (Death)
  Sender: FDA-Public Use
  Company Number: US-TEVA-2018-US-983428

PATIENT

DRUGS (2)
  1. FLUTICASONE. [Concomitant]
     Active Substance: FLUTICASONE
     Indication: CHILDHOOD ASTHMA
     Route: 065
  2. ALBUTEROL(SALBUTAMOL) [Suspect]
     Active Substance: ALBUTEROL
     Indication: CHILDHOOD ASTHMA
     Route: 065

REACTIONS (4)
  - Asthma [Fatal]
  - Cardio-respiratory arrest [Fatal]
  - Arteriovenous malformation [Fatal]
  - Bronchial anastomosis [Fatal]
